FAERS Safety Report 11708673 (Version 1)
Quarter: 2015Q4

REPORT INFORMATION
  Report Type: Spontaneous
  Country: US (occurrence: US)
  Receive Date: 20151104
  Receipt Date: 20151104
  Transmission Date: 20160304
  Serious: No
  Sender: FDA-Public Use
  Company Number: US-ELI_LILLY_AND_COMPANY-US201103002681

PATIENT
  Sex: Female

DRUGS (2)
  1. FORTEO [Suspect]
     Active Substance: TERIPARATIDE
  2. BONIVA [Concomitant]
     Active Substance: IBANDRONATE SODIUM

REACTIONS (2)
  - Restless legs syndrome [Unknown]
  - No adverse event [Unknown]
